FAERS Safety Report 6866931-8 (Version None)
Quarter: 2010Q3

REPORT INFORMATION
  Report Type: 
  Country: None (occurrence: None)
  Receive Date: 20100722
  Receipt Date: 20100722
  Transmission Date: 20110219
  Serious: No
  Sender: FDA-Public Use
  Company Number: None

PATIENT
  Age: 65 Year
  Sex: Female
  Weight: 74.8435 kg

DRUGS (1)
  1. LIPITOR [Suspect]
     Indication: CARDIAC FAILURE CONGESTIVE
     Dosage: 1 TABLET DAILY P.O.
     Route: 048
     Dates: start: 20070101, end: 20100101

REACTIONS (4)
  - DYSSTASIA [None]
  - FALL [None]
  - PAIN IN EXTREMITY [None]
  - WALKING AID USER [None]
